FAERS Safety Report 11968765 (Version 17)
Quarter: 2019Q1

REPORT INFORMATION
  Report Type: Report from Study
  Country: CA (occurrence: CA)
  Receive Date: 20160128
  Receipt Date: 20190130
  Transmission Date: 20190417
  Serious: Yes (Other)
  Sender: FDA-Public Use
  Company Number: CA-ROCHE-1219752

PATIENT
  Age: 40 Year
  Sex: Male
  Weight: 61 kg

DRUGS (18)
  1. ACTEMRA [Suspect]
     Active Substance: TOCILIZUMAB
     Route: 042
     Dates: start: 20150223
  2. ACTEMRA [Suspect]
     Active Substance: TOCILIZUMAB
     Route: 042
     Dates: start: 20130523
  3. ACTEMRA [Suspect]
     Active Substance: TOCILIZUMAB
     Route: 042
     Dates: start: 20150727
  4. ACTEMRA [Suspect]
     Active Substance: TOCILIZUMAB
     Route: 042
     Dates: start: 20161117
  5. 30/70 INSULIN [Concomitant]
  6. TRAZODONE [Concomitant]
     Active Substance: TRAZODONE HYDROCHLORIDE
  7. ACTEMRA [Suspect]
     Active Substance: TOCILIZUMAB
     Indication: STILL^S DISEASE
     Route: 042
     Dates: start: 20111209
  8. DILAUDID [Concomitant]
     Active Substance: HYDROMORPHONE HYDROCHLORIDE
     Route: 065
  9. PROGRAF [Concomitant]
     Active Substance: TACROLIMUS\TACROLIMUS ANHYDROUS
  10. ACTEMRA [Suspect]
     Active Substance: TOCILIZUMAB
     Route: 042
     Dates: start: 20140108
  11. CITALOPRAM [Concomitant]
     Active Substance: CITALOPRAM HYDROBROMIDE
     Indication: DEPRESSION
  12. ACTEMRA [Suspect]
     Active Substance: TOCILIZUMAB
     Indication: OFF LABEL USE
     Route: 042
     Dates: start: 20130305
  13. ACTEMRA [Suspect]
     Active Substance: TOCILIZUMAB
     Route: 042
     Dates: start: 20171120
  14. PREDNISONE. [Concomitant]
     Active Substance: PREDNISONE
  15. MORPHINE [Concomitant]
     Active Substance: MORPHINE
  16. COD LIVER PILL [Concomitant]
  17. MARIJUANA [Concomitant]
     Active Substance: CANNABIS SATIVA SUBSP. INDICA TOP
  18. TACROLIMUS. [Concomitant]
     Active Substance: TACROLIMUS

REACTIONS (30)
  - Ligament sprain [Unknown]
  - Heart rate decreased [Unknown]
  - Weight decreased [Recovering/Resolving]
  - Weight decreased [Not Recovered/Not Resolved]
  - Pain in extremity [Not Recovered/Not Resolved]
  - Allergy to plants [Unknown]
  - Dizziness postural [Not Recovered/Not Resolved]
  - Blood pressure systolic increased [Unknown]
  - Inflammation [Unknown]
  - Mean cell volume increased [Unknown]
  - Neutrophil count decreased [Unknown]
  - Influenza [Recovered/Resolved]
  - Blood pressure systolic abnormal [Unknown]
  - Dental caries [Not Recovered/Not Resolved]
  - Pneumonia [Recovered/Resolved]
  - Hunger [Not Recovered/Not Resolved]
  - Heart rate increased [Unknown]
  - Muscle strain [Unknown]
  - Weight increased [Not Recovered/Not Resolved]
  - Blood cholesterol increased [Unknown]
  - Mean cell haemoglobin increased [Unknown]
  - Peripheral swelling [Not Recovered/Not Resolved]
  - Blood pressure diastolic decreased [Unknown]
  - Blood creatinine increased [Unknown]
  - Off label use [Unknown]
  - Influenza [Recovering/Resolving]
  - Joint swelling [Unknown]
  - Pain [Unknown]
  - Rash pustular [Unknown]
  - Joint injury [Unknown]

NARRATIVE: CASE EVENT DATE: 20141208
